FAERS Safety Report 23242914 (Version 1)
Quarter: 2023Q4

REPORT INFORMATION
  Report Type: Spontaneous
  Country: US (occurrence: US)
  Receive Date: 20231129
  Receipt Date: 20231129
  Transmission Date: 20240110
  Serious: No
  Sender: FDA-Public Use
  Company Number: US-ABBVIE-5519532

PATIENT
  Sex: Male

DRUGS (1)
  1. LUPRON DEPOT [Suspect]
     Active Substance: LEUPROLIDE ACETATE
     Indication: Prostate cancer
     Route: 065

REACTIONS (6)
  - Hypersensitivity [Unknown]
  - Rash papular [Unknown]
  - Urticaria [Unknown]
  - Rash pruritic [Unknown]
  - Dermatitis acneiform [Unknown]
  - Rash maculo-papular [Unknown]
